FAERS Safety Report 4793381-0 (Version None)
Quarter: 2005Q4

REPORT INFORMATION
  Report Type: 
  Country: None (occurrence: None)
  Receive Date: 20051005
  Receipt Date: 20050922
  Transmission Date: 20060501
  Serious: Yes (Other)
  Sender: FDA-Public Use
  Company Number: 2005130637

PATIENT
  Age: 68 Year
  Sex: Female
  Weight: 90.7194 kg

DRUGS (9)
  1. CADUET [Suspect]
     Indication: BLOOD CHOLESTEROL INCREASED
     Dosage: 10MG/10MG (1 IN 1 D) ORAL
     Route: 048
     Dates: start: 20050329, end: 20050908
  2. TRIAMTERENE [Concomitant]
  3. VALSARTAN [Concomitant]
  4. POTASSIUM [Concomitant]
  5. CELEBREX [Concomitant]
  6. QUININE SULFATE [Concomitant]
  7. BISACODYL [Concomitant]
  8. PEG 3350 AND ELECTROLYTES FOR ORAL SOLUTION (MACROGOL, POTASSIUM CHLOR [Concomitant]
  9. LEVOXYL [Concomitant]

REACTIONS (6)
  - DIFFICULTY IN WALKING [None]
  - DYSPNOEA [None]
  - FLUID RETENTION [None]
  - GENERALISED OEDEMA [None]
  - PAIN IN EXTREMITY [None]
  - WEIGHT INCREASED [None]
